FAERS Safety Report 4780922-2 (Version None)
Quarter: 2005Q3

REPORT INFORMATION
  Report Type: 
  Country: None (occurrence: None)
  Receive Date: 20050926
  Receipt Date: 20050926
  Transmission Date: 20060218
  Serious: Yes (Death, Other)
  Sender: FDA-Public Use
  Company Number: None

PATIENT
  Age: 42 Year
  Sex: Female
  Weight: 83.9154 kg

DRUGS (2)
  1. WELLBUTRIN [Suspect]
  2. LUNESTA [Suspect]

REACTIONS (1)
  - COMPLETED SUICIDE [None]
